FAERS Safety Report 9845959 (Version 1)
Quarter: 2014Q1

REPORT INFORMATION
  Report Type: Report from Study
  Country: BR (occurrence: BR)
  Receive Date: 20140127
  Receipt Date: 20140127
  Transmission Date: 20141002
  Serious: Yes (Death, Other)
  Sender: FDA-Public Use
  Company Number: PHHY2014BR009078

PATIENT
  Sex: Female

DRUGS (2)
  1. DIOVAN [Suspect]
     Dosage: UNK UKN, UNK
  2. BUFFERIN CARDIO [Suspect]
     Dosage: UNK UKN, UNK

REACTIONS (2)
  - Infarction [Fatal]
  - Cardiac arrest [Fatal]
